FAERS Safety Report 4272842-7 (Version None)
Quarter: 2004Q1

REPORT INFORMATION
  Report Type: 
  Country: None (occurrence: None)
  Receive Date: 20040114
  Receipt Date: 20040109
  Transmission Date: 20041129
  Serious: Yes (Other)
  Sender: FDA-Public Use
  Company Number: HQWYE127517NOV03

PATIENT
  Age: 90 Year
  Sex: Female
  Weight: 52.21 kg

DRUGS (1)
  1. PROTONIX [Suspect]
     Indication: GASTROOESOPHAGEAL REFLUX DISEASE
     Dosage: 40 MG 1X PER 1 DAY, ORAL
     Route: 048
     Dates: start: 20030101, end: 20030901

REACTIONS (5)
  - BLOOD CHOLESTEROL INCREASED [None]
  - CARCINOMA [None]
  - GINGIVAL DISORDER [None]
  - TRI-IODOTHYRONINE UPTAKE INCREASED [None]
  - VITAMIN B12 INCREASED [None]
